FAERS Safety Report 23350707 (Version 1)
Quarter: 2023Q4

REPORT INFORMATION
  Report Type: Spontaneous
  Country: IT (occurrence: IT)
  Receive Date: 20231229
  Receipt Date: 20231229
  Transmission Date: 20240109
  Serious: Yes (Other)
  Sender: FDA-Public Use
  Company Number: IT-PFM-2023-06971

PATIENT
  Age: 30 Year
  Sex: Male

DRUGS (5)
  1. BENDAMUSTINE HYDROCHLORIDE [Suspect]
     Active Substance: BENDAMUSTINE HYDROCHLORIDE
     Indication: Hodgkin^s disease
     Dosage: UNK
     Route: 065
     Dates: start: 202002
  2. GEMCITABINE [Suspect]
     Active Substance: GEMCITABINE
     Indication: Hodgkin^s disease
     Dosage: UNK
     Route: 065
     Dates: start: 202002
  3. BRENTUXIMAB VEDOTIN [Suspect]
     Active Substance: BRENTUXIMAB VEDOTIN
     Indication: Hodgkin^s disease
     Dosage: UNK
     Route: 065
  4. BLEOMYCIN\DACARBAZINE\DOXORUBICIN\VINBLASTINE [Suspect]
     Active Substance: BLEOMYCIN\DACARBAZINE\DOXORUBICIN\VINBLASTINE
     Indication: Hodgkin^s disease
     Dosage: UNK
     Route: 065
     Dates: start: 202004
  5. VINORELBINE [Suspect]
     Active Substance: VINORELBINE TARTRATE
     Indication: Hodgkin^s disease
     Dosage: UNK
     Route: 065
     Dates: start: 202002

REACTIONS (3)
  - Haematotoxicity [Unknown]
  - Product use in unapproved indication [Unknown]
  - Off label use [Unknown]
